FAERS Safety Report 13583142 (Version 8)
Quarter: 2021Q2

REPORT INFORMATION
  Report Type: Report from Study
  Country: US (occurrence: US)
  Receive Date: 20170525
  Receipt Date: 20210615
  Transmission Date: 20210716
  Serious: Yes (Other)
  Sender: FDA-Public Use
  Company Number: US-JAZZ-2017-US-005558

PATIENT
  Sex: Female

DRUGS (38)
  1. XYREM [Suspect]
     Active Substance: SODIUM OXYBATE
     Indication: NARCOLEPSY
     Dosage: 2.25 GRAM, BID
     Route: 048
     Dates: start: 201203, end: 201204
  2. WESTHROID [Concomitant]
     Active Substance: THYROGLOBULIN
  3. FOLIC ACID. [Concomitant]
     Active Substance: FOLIC ACID
  4. MAGNESIUM CITRATE. [Concomitant]
     Active Substance: MAGNESIUM CITRATE
  5. PROPRANOLOL [Concomitant]
     Active Substance: PROPRANOLOL HYDROCHLORIDE
  6. TRAMADOL HCL [Concomitant]
     Active Substance: TRAMADOL HYDROCHLORIDE
  7. VERAPAMIL HYDROCHLORIDE. [Concomitant]
     Active Substance: VERAPAMIL HYDROCHLORIDE
  8. NATURE?THROID [Concomitant]
     Active Substance: THYROID, PORCINE
  9. CALCARB [Concomitant]
  10. DIPHENHYDRAMINE HYDROCHLORIDE. [Concomitant]
     Active Substance: DIPHENHYDRAMINE HYDROCHLORIDE
  11. VITAMIN D3 [Concomitant]
     Active Substance: CHOLECALCIFEROL
  12. ATIVAN [Concomitant]
     Active Substance: LORAZEPAM
  13. VERAPAMIL [Concomitant]
     Active Substance: VERAPAMIL HYDROCHLORIDE
  14. PROMETHAZINE [Concomitant]
     Active Substance: PROMETHAZINE HYDROCHLORIDE
  15. CHROMIUM PICOLINAT [Concomitant]
  16. PHYTOMENADIONE [Concomitant]
     Active Substance: PHYTONADIONE
  17. SELENIUM [Concomitant]
     Active Substance: SELENIUM
  18. IODINE. [Concomitant]
     Active Substance: IODINE
  19. ARTHROTEC [Concomitant]
     Active Substance: DICLOFENAC SODIUM\MISOPROSTOL
  20. CAMBIA [Concomitant]
     Active Substance: DICLOFENAC POTASSIUM
  21. PROCHLORPERAZINE EDISYLATE. [Concomitant]
     Active Substance: PROCHLORPERAZINE EDISYLATE
  22. TORADOL [Concomitant]
     Active Substance: KETOROLAC TROMETHAMINE
  23. ALBUTEROL SULFATE. [Concomitant]
     Active Substance: ALBUTEROL SULFATE
  24. SPIRONOLACTONE. [Concomitant]
     Active Substance: SPIRONOLACTONE
  25. ZINC ACETATE [Concomitant]
     Active Substance: ZINC ACETATE
  26. XYREM [Suspect]
     Active Substance: SODIUM OXYBATE
     Dosage: 3 GRAM, BID
     Route: 048
     Dates: start: 201204, end: 201209
  27. METHOCARBAMOL. [Concomitant]
     Active Substance: METHOCARBAMOL
  28. CALCIUM CITRATE +D [Concomitant]
     Active Substance: CALCIUM CITRATE\VITAMIN D
  29. MAGNESIUM [Concomitant]
     Active Substance: MAGNESIUM
  30. MINIVELLE [Concomitant]
     Active Substance: ESTRADIOL
  31. ASCORBIC ACID. [Concomitant]
     Active Substance: ASCORBIC ACID
  32. XANAX [Concomitant]
     Active Substance: ALPRAZOLAM
  33. MELATONIN [Concomitant]
     Active Substance: MELATONIN
  34. XYREM [Suspect]
     Active Substance: SODIUM OXYBATE
     Dosage: 4.5 GRAM, BID
     Route: 048
     Dates: start: 201209
  35. DEMEROL [Concomitant]
     Active Substance: MEPERIDINE HYDROCHLORIDE
  36. TRAZODONE [Concomitant]
     Active Substance: TRAZODONE HYDROCHLORIDE
  37. ZINC GLUCONATE [Concomitant]
     Active Substance: ZINC GLUCONATE
  38. KLONOPIN [Concomitant]
     Active Substance: CLONAZEPAM

REACTIONS (8)
  - Spinal disorder [Not Recovered/Not Resolved]
  - Therapeutic procedure [Unknown]
  - Hepatic steatosis [Not Recovered/Not Resolved]
  - Muscle spasms [Not Recovered/Not Resolved]
  - Gastritis [Not Recovered/Not Resolved]
  - Blood insulin increased [Not Recovered/Not Resolved]
  - Weight increased [Unknown]
  - Fluid retention [Not Recovered/Not Resolved]

NARRATIVE: CASE EVENT DATE: 2019
